FAERS Safety Report 9736097 (Version 3)
Quarter: 2014Q1

REPORT INFORMATION
  Report Type: Spontaneous
  Country: GB (occurrence: GB)
  Receive Date: 20131206
  Receipt Date: 20140313
  Transmission Date: 20141002
  Serious: Yes (Other)
  Sender: FDA-Public Use
  Company Number: GB-GLAXOSMITHKLINE-B0950174A

PATIENT
  Age: 88 Year
  Sex: Male

DRUGS (15)
  1. COMBODART [Suspect]
     Indication: BENIGN PROSTATIC HYPERPLASIA
     Dosage: 1CAP PER DAY
     Route: 048
     Dates: start: 20131005
  2. ATENOLOL [Concomitant]
  3. ATORVASTATIN [Concomitant]
  4. FORTISIP [Concomitant]
  5. GABAPENTIN [Concomitant]
  6. ARTIFICIAL TEARS [Concomitant]
  7. GTN SPRAY [Concomitant]
  8. PARACETAMOL [Concomitant]
  9. LAXIDO [Concomitant]
  10. NICORANDIL [Concomitant]
  11. OMEPRAZOLE [Concomitant]
  12. FUROSEMIDE [Concomitant]
  13. SIMPLE LINCTUS [Concomitant]
  14. AVODART [Concomitant]
  15. TAMSULOSIN [Concomitant]

REACTIONS (5)
  - Cardiac failure congestive [Recovering/Resolving]
  - Productive cough [Recovering/Resolving]
  - Dyspnoea [Recovering/Resolving]
  - Oedema peripheral [Recovering/Resolving]
  - Localised oedema [Unknown]
